FAERS Safety Report 8303165-4 (Version None)
Quarter: 2012Q2

REPORT INFORMATION
  Report Type: 
  Country: None (occurrence: None)
  Receive Date: 20120423
  Receipt Date: 20120413
  Transmission Date: 20120825
  Serious: Yes (Other)
  Sender: FDA-Public Use
  Company Number: US-BIOGENIDEC-2012BI012953

PATIENT
  Sex: Female

DRUGS (2)
  1. AVONEX [Suspect]
     Indication: MULTIPLE SCLEROSIS
     Route: 030
     Dates: start: 20020428, end: 20050428
  2. AVONEX [Suspect]
     Route: 030
     Dates: start: 20100420, end: 20111112

REACTIONS (1)
  - CEREBROVASCULAR ACCIDENT [None]
